FAERS Safety Report 10390049 (Version 1)
Quarter: 2014Q1

REPORT INFORMATION
  Report Type: Spontaneous
  Country: US (occurrence: None)
  Receive Date: 20140306
  Receipt Date: 20140306
  Transmission Date: 20141002
  Serious: Yes (Hospitalization)
  Sender: FDA-Public Use
  Company Number: 163-21880-13012574

PATIENT
  Age: 69 Year
  Sex: Male

DRUGS (5)
  1. REVLIMID (LENALIDOMIDE) (25 MILLIGRAM, CAPSULES) [Suspect]
     Indication: PLASMA CELL MYELOMA
     Dosage: 21 IN 28 D
     Route: 048
     Dates: start: 201209
  2. TRAZODONE [Concomitant]
  3. RANITIDINE [Concomitant]
  4. CLONAZEPAM [Concomitant]
  5. METOPROLOL ER (METOPROLOL) [Concomitant]

REACTIONS (2)
  - Dyspnoea [None]
  - Hypotension [None]
